FAERS Safety Report 7003996-7 (Version None)
Quarter: 2010Q3

REPORT INFORMATION
  Report Type: 
  Country: None (occurrence: None)
  Receive Date: 20100920
  Receipt Date: 20100125
  Transmission Date: 20110219
  Serious: No
  Sender: FDA-Public Use
  Company Number: US-WYE-H13148110

PATIENT
  Sex: Female
  Weight: 63.56 kg

DRUGS (5)
  1. PRISTIQ [Suspect]
     Indication: DEPRESSION
     Route: 048
     Dates: start: 20080101
  2. TRAZODONE HCL [Concomitant]
  3. RANITIDINE [Concomitant]
  4. SEROQUEL [Suspect]
  5. CLONAZEPAM [Concomitant]

REACTIONS (8)
  - DECREASED APPETITE [None]
  - DIZZINESS [None]
  - DRUG WITHDRAWAL SYNDROME [None]
  - FEELING ABNORMAL [None]
  - HYPERVIGILANCE [None]
  - SLEEP-RELATED EATING DISORDER [None]
  - WEIGHT DECREASED [None]
  - WEIGHT FLUCTUATION [None]
